FAERS Safety Report 8347243-2 (Version None)
Quarter: 2012Q2

REPORT INFORMATION
  Report Type: 
  Country: None (occurrence: None)
  Receive Date: 20120507
  Receipt Date: 20120423
  Transmission Date: 20120825
  Serious: Yes (Death, Hospitalization)
  Sender: FDA-Public Use
  Company Number: NSR_00541_2012

PATIENT
  Age: 40 Year
  Sex: Female

DRUGS (2)
  1. MIRTAZAPINE [Suspect]
     Indication: PRODUCT USED FOR UNKNOWN INDICATION
     Dosage: DF
  2. LAMOTRIGINE [Suspect]
     Dosage: DF

REACTIONS (11)
  - HYPOTENSION [None]
  - ASPERGILLUS TEST POSITIVE [None]
  - UNRESPONSIVE TO STIMULI [None]
  - SEPTIC SHOCK [None]
  - CANDIDA TEST POSITIVE [None]
  - MULTI-ORGAN DISORDER [None]
  - AGRANULOCYTOSIS [None]
  - ENTEROCOCCUS TEST POSITIVE [None]
  - GENERAL PHYSICAL HEALTH DETERIORATION [None]
  - FEBRILE NEUTROPENIA [None]
  - DRUG INTERACTION [None]
